FAERS Safety Report 5297665-1 (Version None)
Quarter: 2007Q2

REPORT INFORMATION
  Report Type: 
  Country: None (occurrence: None)
  Receive Date: 20070409
  Receipt Date: 20070330
  Transmission Date: 20071010
  Serious: Yes (Other)
  Sender: FDA-Public Use
  Company Number: B0465063A

PATIENT
  Sex: Male

DRUGS (2)
  1. COMMIT NICOTINE POLACRILEX LOZENGE LOZENGE (NOCOTINE POLACRILEX) [Suspect]
     Dosage: 2 MG / FOUR TIMES PER DAY / TRANSB
     Route: 002
  2. BUPROPION HYDROCHLORIDE [Concomitant]

REACTIONS (2)
  - DRUG DEPENDENCE [None]
  - WRONG TECHNIQUE IN DRUG USAGE PROCESS [None]
